FAERS Safety Report 7543291-0 (Version None)
Quarter: 2011Q2

REPORT INFORMATION
  Report Type: 
  Country: None (occurrence: None)
  Receive Date: 20110613
  Receipt Date: 20110601
  Transmission Date: 20111010
  Serious: Yes (Other)
  Sender: FDA-Public Use
  Company Number: JP-PFIZER INC-2011060239

PATIENT
  Age: 76 Year
  Sex: Male

DRUGS (12)
  1. LAC B [Concomitant]
     Indication: SUBILEUS
     Dosage: 6 G DAILY
     Dates: start: 20100908
  2. AMLODIPINE [Suspect]
     Indication: HYPERTENSION
     Dosage: 5 MG, DAILY
     Dates: start: 20110125, end: 20110219
  3. CETAPRIL [Concomitant]
     Indication: HYPERTENSION
     Dosage: 12.5 MG, DAILY
     Dates: start: 20100908, end: 20101117
  4. DIGOXIN [Concomitant]
     Indication: ATRIAL FIBRILLATION
     Dosage: 0.125 MG, DAILY
     Dates: start: 20101118, end: 20101204
  5. DIGOXIN [Concomitant]
     Dosage: 62.5 UG, DAILY
     Dates: start: 20101208
  6. CANDESARTAN CILEXETIL [Concomitant]
     Indication: HYPERTENSION
     Dosage: 8 MG, DAILY
     Dates: start: 20101118
  7. AMLODIPINE [Suspect]
     Dosage: 2.5 MG, DAILY
     Dates: start: 20110220, end: 20110225
  8. LASIX [Concomitant]
     Dosage: 20 MG, DAILY
     Dates: start: 20101218
  9. FRANDOL [Concomitant]
     Indication: HYPERTENSION
     Dosage: 40 MG, DAILY
     Dates: start: 20101104
  10. INDERAL [Concomitant]
     Indication: ATRIAL FIBRILLATION
     Dosage: 30 MG, DAILY
     Dates: start: 20100908
  11. LASIX [Concomitant]
     Indication: CARDIAC FAILURE CONGESTIVE
     Dosage: 10 MG, DAILY
     Dates: start: 20100908, end: 20101217
  12. GASMOTIN [Concomitant]
     Indication: GASTRITIS
     Dosage: 15 MG, DAILY
     Dates: start: 20101202

REACTIONS (1)
  - HYPOTHERMIA [None]
